FAERS Safety Report 6259691-5 (Version None)
Quarter: 2009Q3

REPORT INFORMATION
  Report Type: 
  Country: None (occurrence: None)
  Receive Date: 20090708
  Receipt Date: 20090702
  Transmission Date: 20100115
  Serious: Yes (Life-Threatening)
  Sender: FDA-Public Use
  Company Number: DE-BAYER-200924791GPV

PATIENT
  Age: 78 Year
  Sex: Female

DRUGS (13)
  1. CIPROBAY [Suspect]
     Indication: URINARY TRACT INFECTION
     Route: 048
  2. CIPROBAY [Suspect]
     Route: 042
  3. NON-STEROIDAL ANTI-INFLAMMATORY DRUGS (NOS) [Concomitant]
     Indication: BACK PAIN
     Route: 065
  4. NEXIUM [Concomitant]
     Indication: GASTRITIS HAEMORRHAGIC
     Route: 042
  5. NEXIUM [Concomitant]
     Route: 048
  6. DICLAC [Concomitant]
     Indication: ANALGESIC THERAPY
     Route: 065
  7. KLACID [Concomitant]
     Indication: HELICOBACTER INFECTION
     Route: 065
  8. METRONT [Concomitant]
     Indication: HELICOBACTER INFECTION
     Route: 065
  9. JONOSTERIL [Concomitant]
     Indication: FLUID REPLACEMENT
     Route: 065
  10. MINERALS NOS [Concomitant]
     Indication: MEDICAL DIET
     Route: 065
  11. DIURETICS [Concomitant]
     Indication: RENAL FAILURE
     Route: 065
  12. BLOOD TRANSFUSION NOS [Concomitant]
     Indication: ANAEMIA
     Route: 065
  13. DOBUTAMIN [Concomitant]
     Indication: RENAL FAILURE
     Route: 042

REACTIONS (2)
  - LOSS OF CONSCIOUSNESS [None]
  - VENTRICULAR FIBRILLATION [None]
